FAERS Safety Report 6023174-8 (Version None)
Quarter: 2008Q4

REPORT INFORMATION
  Report Type: 
  Country: None (occurrence: None)
  Receive Date: 20081230
  Receipt Date: 20081229
  Transmission Date: 20090506
  Serious: Yes (Hospitalization)
  Sender: FDA-Public Use
  Company Number: B0552032A

PATIENT
  Age: 80 Year
  Sex: Female

DRUGS (4)
  1. ARTIST [Suspect]
     Indication: DRUG USE FOR UNKNOWN INDICATION
     Dosage: 10MG PER DAY
     Route: 048
  2. BEPRICOR [Suspect]
     Indication: ATRIAL FIBRILLATION
     Dosage: 100MG PER DAY
     Route: 048
     Dates: start: 20081101, end: 20081204
  3. ASPENON [Suspect]
     Indication: DRUG USE FOR UNKNOWN INDICATION
     Route: 065
  4. TAKEPRON [Concomitant]
     Indication: DRUG USE FOR UNKNOWN INDICATION
     Route: 065

REACTIONS (2)
  - ATRIOVENTRICULAR BLOCK [None]
  - VENTRICULAR TACHYCARDIA [None]
